FAERS Safety Report 4522580-8 (Version None)
Quarter: 2004Q4

REPORT INFORMATION
  Report Type: 
  Country: None (occurrence: None)
  Receive Date: 20041207
  Receipt Date: 20041125
  Transmission Date: 20050328
  Serious: Yes (Hospitalization)
  Sender: FDA-Public Use
  Company Number: 2004099641

PATIENT
  Age: 14 Year
  Sex: Female

DRUGS (3)
  1. ZARONTIN SYRUP [Suspect]
     Indication: MYOCLONIC EPILEPSY
     Dosage: (3 IN 1 D)
  2. CLONAZEPAM [Concomitant]
  3. VALPROATE SODIUM [Concomitant]

REACTIONS (4)
  - CONDITION AGGRAVATED [None]
  - DRUG EFFECT DECREASED [None]
  - EPILEPSY [None]
  - MEDICATION ERROR [None]
